FAERS Safety Report 4521655-7 (Version None)
Quarter: 2004Q4

REPORT INFORMATION
  Report Type: 
  Country: None (occurrence: None)
  Receive Date: 20041206
  Receipt Date: 20041129
  Transmission Date: 20050328
  Serious: Yes (Hospitalization)
  Sender: FDA-Public Use
  Company Number: 200410614BFR

PATIENT
  Age: 53 Year
  Sex: Male

DRUGS (7)
  1. CIPROFLOXACIN HCL [Suspect]
     Dosage: 1500 MG, TOTAL DAILY, ORAL
     Route: 048
     Dates: start: 20041017, end: 20041114
  2. TAZOCILLINE [Suspect]
     Dosage: 12 G, TOTAL DAILY, INTRAVENOUS
     Route: 042
     Dates: start: 20041017, end: 20041114
  3. GARDENALE [Concomitant]
  4. RIVOTRIL [Concomitant]
  5. FLAGYL [Concomitant]
  6. ROCEPHIN [Concomitant]
  7. OFLOCET [Concomitant]

REACTIONS (6)
  - ANAEMIA [None]
  - C-REACTIVE PROTEIN INCREASED [None]
  - EOSINOPHILIA [None]
  - NEUTROPENIA [None]
  - PRURITUS [None]
  - RASH ERYTHEMATOUS [None]
